FAERS Safety Report 8143189-3 (Version None)
Quarter: 2012Q1

REPORT INFORMATION
  Report Type: 
  Country: None (occurrence: None)
  Receive Date: 20120217
  Receipt Date: 20120215
  Transmission Date: 20120608
  Serious: No
  Sender: FDA-Public Use
  Company Number: US-PFIZER INC-2012041549

PATIENT
  Sex: Male

DRUGS (1)
  1. CHANTIX [Suspect]
     Dosage: UNK
     Dates: start: 20120201

REACTIONS (5)
  - DISORIENTATION [None]
  - MEMORY IMPAIRMENT [None]
  - FEELING ABNORMAL [None]
  - SENSATION OF HEAVINESS [None]
  - FATIGUE [None]
